FAERS Safety Report 10132672 (Version 2)
Quarter: 2014Q2

REPORT INFORMATION
  Report Type: Spontaneous
  Country: US (occurrence: US)
  Receive Date: 20140428
  Receipt Date: 20140428
  Transmission Date: 20141212
  Serious: No
  Sender: FDA-Public Use
  Company Number: US-MALLINCKRODT-T201304918

PATIENT
  Age: 67 Year
  Sex: Female
  Weight: 158.73 kg

DRUGS (7)
  1. HYDROCODONE/ACETAMINOPHEN [Suspect]
     Indication: ARTHRALGIA
     Dosage: 10/325 MG, 1.5 TABLETS Q6H
     Route: 048
     Dates: start: 20131112
  2. NORCO [Concomitant]
     Indication: ARTHRITIS
     Dosage: 10/325 MG; TAKE 1.5 TABS EVERY 6 HOURS AS NEEDED
     Route: 065
     Dates: end: 20131107
  3. SYNTHROID [Concomitant]
     Indication: HYPOTHYROIDISM
     Dosage: UNK
     Route: 048
  4. DIOVAN [Concomitant]
     Indication: HYPERTENSION
     Dosage: UNK
     Route: 048
  5. AMBIEN [Concomitant]
     Indication: INSOMNIA
     Dosage: UNK
     Route: 048
  6. ANACIN                             /00141001/ [Concomitant]
     Indication: BREAKTHROUGH PAIN
     Dosage: UNK
     Route: 048
  7. ALLEGRA [Concomitant]
     Indication: SEASONAL ALLERGY
     Dosage: UNK
     Route: 048

REACTIONS (2)
  - Joint swelling [Not Recovered/Not Resolved]
  - Product quality issue [Unknown]
